FAERS Safety Report 5662573-0 (Version None)
Quarter: 2008Q1

REPORT INFORMATION
  Report Type: 
  Country: None (occurrence: None)
  Receive Date: 20080310
  Receipt Date: 20080310
  Transmission Date: 20080703
  Serious: Yes (Life-Threatening, Hospitalization, Other)
  Sender: FDA-Public Use
  Company Number: None

PATIENT
  Age: 2 Year
  Sex: Male
  Weight: 12.2 kg

DRUGS (8)
  1. ETANERCEPT AMGEN [Suspect]
     Indication: KAWASAKI'S DISEASE
     Dosage: 0.8 MG/KG ONCE SQ
     Route: 058
     Dates: start: 20080131, end: 20080131
  2. ENBREL [Concomitant]
  3. ACETAMINOPHEN [Concomitant]
  4. ASPIRIN [Concomitant]
  5. DIPHENHYDRAMINE HCL [Concomitant]
  6. DIAZEPAM [Concomitant]
  7. IVIG -IMMUNOGLOBULIN- [Concomitant]
  8. POLYETHYLENE GLYCOL [Concomitant]

REACTIONS (5)
  - HYDROCEPHALUS [None]
  - MENINGITIS MENINGOCOCCAL [None]
  - MOTOR DYSFUNCTION [None]
  - PYREXIA [None]
  - TREATMENT FAILURE [None]
